FAERS Safety Report 19162627 (Version 3)
Quarter: 2021Q2

REPORT INFORMATION
  Report Type: Report from Study
  Country: US (occurrence: US)
  Receive Date: 20210421
  Receipt Date: 20210518
  Transmission Date: 20210717
  Serious: No
  Sender: FDA-Public Use
  Company Number: NVSC2021US084231

PATIENT
  Sex: Female

DRUGS (1)
  1. KESIMPTA [Suspect]
     Active Substance: OFATUMUMAB
     Indication: PRODUCT USED FOR UNKNOWN INDICATION
     Dosage: UNK
     Route: 065

REACTIONS (7)
  - Incorrect dose administered by device [Unknown]
  - Headache [Unknown]
  - Muscular weakness [Unknown]
  - Myalgia [Unknown]
  - Needle issue [Unknown]
  - Migraine [Unknown]
  - Pruritus [Unknown]
